FAERS Safety Report 25919303 (Version 1)
Quarter: 2025Q4

REPORT INFORMATION
  Report Type: Spontaneous
  Country: US (occurrence: None)
  Receive Date: 20251013
  Receipt Date: 20251013
  Transmission Date: 20260118
  Serious: No
  Sender: FDA-CTU
  Company Number: None

PATIENT
  Age: 48 Year
  Sex: Female

DRUGS (10)
  1. ADBRY [Suspect]
     Active Substance: TRALOKINUMAB-LDRM
  2. ACETAMINOPHEN 500MG TABLETS [Concomitant]
  3. ALBUTEROL HFA INH (200 PUFFS) 8.5GM [Concomitant]
  4. OMEPRAZOLE [Concomitant]
     Active Substance: OMEPRAZOLE
  5. TORSEMIDE 20MG TABLETS [Concomitant]
  6. FLUOCINONIDE 0.1% CREAM 60GM [Concomitant]
  7. KETOCONAZOLE [Concomitant]
     Active Substance: KETOCONAZOLE
  8. CIPRO [Concomitant]
     Active Substance: CIPROFLOXACIN HYDROCHLORIDE
  9. METRONIDAZOLE [Concomitant]
     Active Substance: METRONIDAZOLE
  10. DOXYCYCLINE [Concomitant]
     Active Substance: DOXYCYCLINE

REACTIONS (1)
  - Rash [None]

NARRATIVE: CASE EVENT DATE: 20251013
